FAERS Safety Report 26076352 (Version 1)
Quarter: 2025Q4

REPORT INFORMATION
  Report Type: Report from Study
  Country: US (occurrence: US)
  Receive Date: 20251121
  Receipt Date: 20251121
  Transmission Date: 20260117
  Serious: Yes (Other)
  Sender: DR REDDYS
  Company Number: US-drreddys-CLI/USA/23/0163665

PATIENT
  Age: 29 Year
  Sex: Female

DRUGS (4)
  1. ACCUTANE [Suspect]
     Active Substance: ISOTRETINOIN
     Indication: Acne
     Dosage: RMA ISSUE DATE: 02 DECEMBER 2022 03:30:31 PM, 06 JANUARY 2023 12:37:23 PM, 08 FEBRUARY 2023 12:54:02
     Dates: start: 20221027, end: 20230404
  2. ACCUTANE [Suspect]
     Active Substance: ISOTRETINOIN
     Dates: start: 20220901, end: 20230404
  3. ACCUTANE [Suspect]
     Active Substance: ISOTRETINOIN
     Dates: start: 20220909, end: 20230404
  4. ACCUTANE [Suspect]
     Active Substance: ISOTRETINOIN

REACTIONS (10)
  - Subchorionic haematoma [Recovered/Resolved]
  - Exposure during pregnancy [Recovered/Resolved]
  - Abortion spontaneous [Recovered/Resolved]
  - Angular cheilitis [Unknown]
  - Cheilitis [Unknown]
  - Lip dry [Unknown]
  - Chapped lips [Unknown]
  - Nasal dryness [Unknown]
  - Dry skin [Unknown]
  - Product dose omission issue [Unknown]

NARRATIVE: CASE EVENT DATE: 20230101
